FAERS Safety Report 6853598-8 (Version None)
Quarter: 2010Q3

REPORT INFORMATION
  Report Type: 
  Country: None (occurrence: None)
  Receive Date: 20100717
  Receipt Date: 20071214
  Transmission Date: 20110219
  Serious: No
  Sender: FDA-Public Use
  Company Number: US-PFIZER INC-2007104838

PATIENT
  Sex: Female
  Weight: 72.727 kg

DRUGS (3)
  1. CHANTIX [Suspect]
     Indication: SMOKING CESSATION THERAPY
     Dates: start: 20071001, end: 20071210
  2. ZYRTEC [Concomitant]
     Indication: HYPERSENSITIVITY
  3. VITAMINS [Concomitant]

REACTIONS (1)
  - DISTURBANCE IN ATTENTION [None]
